FAERS Safety Report 5619676-6 (Version None)
Quarter: 2008Q1

REPORT INFORMATION
  Report Type: 
  Country: None (occurrence: None)
  Receive Date: 20080206
  Receipt Date: 20080131
  Transmission Date: 20080703
  Serious: Yes (Death)
  Sender: FDA-Public Use
  Company Number: 163-21880-07120718

PATIENT
  Age: 74 Year
  Sex: Male

DRUGS (1)
  1. REVLIMID [Suspect]
     Indication: MULTIPLE MYELOMA
     Dosage: 25 MG, QD 21 DAYS ON / 7 DAYS OFF, ORAL
     Route: 048
     Dates: start: 20070929, end: 20071201

REACTIONS (1)
  - CARDIAC DISORDER [None]
